FAERS Safety Report 24093859 (Version 1)
Quarter: 2024Q3

REPORT INFORMATION
  Report Type: Report from Study
  Country: US (occurrence: US)
  Receive Date: 20240716
  Receipt Date: 20240716
  Transmission Date: 20241017
  Serious: Yes (Other)
  Sender: ABBVIE
  Company Number: US-ABBVIE-5837368

PATIENT
  Sex: Female

DRUGS (3)
  1. RINVOQ [Suspect]
     Active Substance: UPADACITINIB
     Indication: Rheumatoid arthritis
     Dosage: 1 TABLET BY MOUTH
     Route: 048
     Dates: start: 2023
  2. RINVOQ [Suspect]
     Active Substance: UPADACITINIB
     Indication: Rheumatoid arthritis
     Dosage: 1 TABLET BY MOUTH, 15 MG
     Route: 048
     Dates: start: 20240705
  3. RINVOQ [Suspect]
     Active Substance: UPADACITINIB
     Indication: Rheumatoid arthritis
     Dosage: 1 TABLET BY MOUTH, 15 MG
     Route: 048
     Dates: start: 2023

REACTIONS (7)
  - Gallbladder operation [Unknown]
  - Nausea [Recovered/Resolved]
  - Pain [Unknown]
  - Gait disturbance [Recovering/Resolving]
  - Musculoskeletal disorder [Recovering/Resolving]
  - Musculoskeletal stiffness [Recovering/Resolving]
  - Nodule [Recovering/Resolving]

NARRATIVE: CASE EVENT DATE: 20230101
